FAERS Safety Report 9625506 (Version 2)
Quarter: 2014Q1

REPORT INFORMATION
  Report Type: Spontaneous
  Country: BR (occurrence: BR)
  Receive Date: 20131016
  Receipt Date: 20140106
  Transmission Date: 20141002
  Serious: Yes (Other)
  Sender: FDA-Public Use
  Company Number: PHHY2013BR113975

PATIENT
  Age: 74 Year
  Sex: Female

DRUGS (9)
  1. ENABLEX [Suspect]
     Indication: HYPERTONIC BLADDER
     Dosage: 1 DF, QD
     Route: 048
     Dates: start: 201309, end: 20131105
  2. CHONDROITIN, GLUCOSAMINE [Suspect]
     Indication: CHONDROPATHY
     Dosage: UNK UKN, UNK
  3. SIMVASTATIN [Concomitant]
     Indication: CAROTID ARTERY OCCLUSION
     Dosage: 1 DF, A DAY
     Route: 048
  4. DUOVENT [Concomitant]
     Indication: ASTHMA
     Dosage: 2 DF, PRN (WHEN SHE HAD EPISODES)
     Route: 055
  5. OXIMAX [Concomitant]
     Indication: ASTHMA
     Dosage: 1 DF, A DAY
     Route: 055
  6. FORASEQ [Concomitant]
     Indication: ASTHMA
     Dosage: 2 DF, 2 CAPSULES OF EACH TREATMENT  A DAY
     Route: 055
  7. CITALOPRAM [Concomitant]
     Indication: TREMOR
     Dosage: 1 DF, A DAY
     Route: 048
  8. ALPRAZOLAM [Concomitant]
     Indication: ANXIETY
     Dosage: 1 DF, A DAY
     Route: 048
  9. ALPRAZOLAM [Concomitant]
     Indication: AGITATION

REACTIONS (2)
  - Asthma [Unknown]
  - Oesophagitis [Not Recovered/Not Resolved]
